FAERS Safety Report 9863887 (Version 3)
Quarter: 2015Q2

REPORT INFORMATION
  Report Type: Report from Study
  Country: JP (occurrence: JP)
  Receive Date: 20140203
  Receipt Date: 20150414
  Transmission Date: 20150821
  Serious: Yes (Hospitalization)
  Sender: FDA-Public Use
  Company Number: JP-GLAXOSMITHKLINE-B0965167A

PATIENT
  Age: 76 Year
  Sex: Male
  Weight: 57 kg

DRUGS (8)
  1. MUCOSTA [Concomitant]
     Active Substance: REBAMIPIDE
     Route: 048
  2. ATOVAQUONE. [Suspect]
     Active Substance: ATOVAQUONE
     Indication: ANTIFUNGAL PROPHYLAXIS
     Dosage: 1500 MG, QD
     Route: 048
     Dates: start: 20130529, end: 20130701
  3. WARFARIN [Concomitant]
     Active Substance: WARFARIN
     Route: 048
  4. GLUFAST [Suspect]
     Active Substance: MITIGLINIDE
     Route: 048
     Dates: start: 20130605, end: 20130701
  5. EQUA [Suspect]
     Active Substance: VILDAGLIPTIN
     Route: 048
     Dates: start: 20130605, end: 20130701
  6. DIOVAN [Suspect]
     Active Substance: VALSARTAN
     Dosage: 10 MG, QD
     Route: 048
     Dates: end: 20130701
  7. PREDONINE [Concomitant]
     Active Substance: PREDNISOLONE\PREDNISOLONE ACETATE\PREDNISOLONE SODIUM SUCCINATE
     Dosage: 30 MG, QD
     Route: 048
     Dates: start: 20130311
  8. PREDONINE [Concomitant]
     Active Substance: PREDNISOLONE\PREDNISOLONE ACETATE\PREDNISOLONE SODIUM SUCCINATE
     Indication: ORGANISING PNEUMONIA
     Route: 048
     Dates: start: 20130201, end: 20130308

REACTIONS (1)
  - Liver disorder [Recovered/Resolved]

NARRATIVE: CASE EVENT DATE: 20130624
